FAERS Safety Report 20478114 (Version 1)
Quarter: 2022Q1

REPORT INFORMATION
  Report Type: Spontaneous
  Country: US (occurrence: US)
  Receive Date: 20220216
  Receipt Date: 20220216
  Transmission Date: 20220424
  Serious: No
  Sender: FDA-Public Use
  Company Number: US-BRISTOL-MYERS SQUIBB COMPANY-BMS-2022-018203

PATIENT
  Sex: Female

DRUGS (1)
  1. ELIQUIS [Suspect]
     Active Substance: APIXABAN
     Indication: Embolism venous
     Dosage: 5 MILLIGRAM, BID
     Route: 048
     Dates: start: 20220114

REACTIONS (3)
  - Epistaxis [Unknown]
  - Treatment noncompliance [Unknown]
  - Back pain [Unknown]
